FAERS Safety Report 6241018-6 (Version None)
Quarter: 2009Q2

REPORT INFORMATION
  Report Type: 
  Country: None (occurrence: None)
  Receive Date: 20090623
  Receipt Date: 20090613
  Transmission Date: 20091009
  Serious: Yes (Hospitalization)
  Sender: FDA-Public Use
  Company Number: B0580080A

PATIENT
  Age: 75 Year
  Sex: Female

DRUGS (2)
  1. AMOXICILLIN [Suspect]
  2. ALLOPURINOL [Suspect]

REACTIONS (11)
  - CYSTITIS KLEBSIELLA [None]
  - EYE DISCHARGE [None]
  - GENITAL EROSION [None]
  - LIP EROSION [None]
  - PYREXIA [None]
  - RASH GENERALISED [None]
  - RASH MACULO-PAPULAR [None]
  - SKIN DISORDER [None]
  - SKIN INFECTION [None]
  - STEVENS-JOHNSON SYNDROME [None]
  - TOXIC EPIDERMAL NECROLYSIS [None]
